FAERS Safety Report 7523191-2 (Version None)
Quarter: 2011Q2

REPORT INFORMATION
  Report Type: 
  Country: None (occurrence: None)
  Receive Date: 20110525
  Receipt Date: 20110511
  Transmission Date: 20111010
  Serious: Yes (Other)
  Sender: FDA-Public Use
  Company Number: AUR-APL-2011-01733

PATIENT
  Age: 40 Year
  Sex: Female

DRUGS (4)
  1. CITALOPRAM HYDROBROMIDE [Concomitant]
  2. LEVONORGESTREL, ETHINYL ESTRADIOL [Suspect]
     Dosage: ONCE DAILY
     Dates: start: 20110201
  3. TOPIRAMATE [Suspect]
  4. KEPPRA [Suspect]

REACTIONS (4)
  - DIZZINESS [None]
  - VAGINAL DISCHARGE [None]
  - FEELING HOT [None]
  - PETIT MAL EPILEPSY [None]
